FAERS Safety Report 8156346-7 (Version None)
Quarter: 2012Q1

REPORT INFORMATION
  Report Type: 
  Country: None (occurrence: None)
  Receive Date: 20120222
  Receipt Date: 20120220
  Transmission Date: 20120608
  Serious: No
  Sender: FDA-Public Use
  Company Number: US-PFIZER INC-2012044772

PATIENT
  Sex: Female

DRUGS (1)
  1. LYRICA [Suspect]
     Indication: POST HERPETIC NEURALGIA
     Dosage: UNK, 2X/DAY

REACTIONS (1)
  - PAIN [None]
